FAERS Safety Report 4345187-4 (Version None)
Quarter: 2004Q2

REPORT INFORMATION
  Report Type: 
  Country: None (occurrence: None)
  Receive Date: 20040416
  Receipt Date: 20040416
  Transmission Date: 20050107
  Serious: Yes (Other)
  Sender: FDA-Public Use
  Company Number: None

PATIENT
  Sex: Male
  Weight: 40.8237 kg

DRUGS (8)
  1. TWICE -A-DAY (12 HOUR) NASAL SPRAY  MFGD.BY  PROPHARMA INC [Suspect]
     Indication: NASAL DECONGESTION THERAPY
     Dosage: ONE MONTH
     Dates: start: 20031101
  2. ACYSTOLINE [Suspect]
  3. MUCOMOSE [Suspect]
  4. SALIENE [Suspect]
  5. IRON [Suspect]
  6. DITROPAN [Suspect]
  7. ADEC [Suspect]
  8. VITAMIN [Suspect]

REACTIONS (1)
  - COUGH [None]
